FAERS Safety Report 8049707-8 (Version None)
Quarter: 2012Q1

REPORT INFORMATION
  Report Type: 
  Country: None (occurrence: None)
  Receive Date: 20120117
  Receipt Date: 20120113
  Transmission Date: 20120608
  Serious: Yes (Death)
  Sender: FDA-Public Use
  Company Number: US-GLAXOSMITHKLINE-B0759039A

PATIENT
  Age: 67 Year
  Sex: Male

DRUGS (10)
  1. NEULASTA [Concomitant]
     Dates: start: 20090213, end: 20110722
  2. FOSAMAX [Concomitant]
     Dates: start: 20050101, end: 20110606
  3. NAPROXEN [Concomitant]
     Dates: start: 20080101, end: 20110606
  4. ERLOTINIB HYDROCHLORIDE [Suspect]
     Indication: LUNG ADENOCARCINOMA
     Dosage: 150MG PER DAY
     Route: 048
     Dates: start: 20110114, end: 20110707
  5. PAZOPANIB [Suspect]
     Indication: NON-SMALL CELL LUNG CANCER
     Dosage: 600MG PER DAY
     Dates: start: 20110114, end: 20110707
  6. CALCIUM WITH VITAMIN D [Concomitant]
  7. CLEOCIN T [Concomitant]
     Dates: start: 20110203, end: 20110801
  8. XGEVA [Concomitant]
     Dates: start: 20110714, end: 20110714
  9. EMEND [Concomitant]
     Dates: start: 20110714, end: 20110714
  10. OMEPRAZOLE [Concomitant]
     Dates: start: 20010101, end: 20110110

REACTIONS (1)
  - DISEASE PROGRESSION [None]
